FAERS Safety Report 9804556 (Version 2)
Quarter: 2014Q2

REPORT INFORMATION
  Report Type: Spontaneous
  Country: FR (occurrence: FR)
  Receive Date: 20140108
  Receipt Date: 20140611
  Transmission Date: 20141212
  Serious: Yes (Hospitalization)
  Sender: FDA-Public Use
  Company Number: FR-ASTRAZENECA-2014SE00610

PATIENT
  Age: 33658 Day
  Sex: Male

DRUGS (10)
  1. CRESTOR [Suspect]
     Route: 048
     Dates: start: 20131128, end: 20131231
  2. ORBENINE [Suspect]
     Indication: PARONYCHIA
     Route: 048
     Dates: start: 20131128, end: 20131207
  3. DISCOTRINE [Concomitant]
  4. LASILIX [Concomitant]
  5. TRIATEC [Concomitant]
  6. CORTANCYL [Concomitant]
  7. MOPRAL [Concomitant]
  8. ZYLORIC [Concomitant]
  9. SERESTA [Concomitant]
  10. SEROPLEX [Concomitant]

REACTIONS (5)
  - Coombs positive haemolytic anaemia [Not Recovered/Not Resolved]
  - Fall [Not Recovered/Not Resolved]
  - Loss of consciousness [Not Recovered/Not Resolved]
  - Blood bilirubin unconjugated increased [Not Recovered/Not Resolved]
  - Asthenia [Not Recovered/Not Resolved]
